FAERS Safety Report 10209801 (Version 1)
Quarter: 2014Q2

REPORT INFORMATION
  Report Type: Spontaneous
  Country: AE (occurrence: AE)
  Receive Date: 20140602
  Receipt Date: 20140602
  Transmission Date: 20141212
  Serious: Yes (Other)
  Sender: FDA-Public Use
  Company Number: PHHY2014AE064223

PATIENT
  Age: 18 Year
  Sex: Female
  Weight: 46.6 kg

DRUGS (5)
  1. EXJADE [Suspect]
     Indication: IRON OVERLOAD
     Dosage: 22 MG/KG, DAILY
     Route: 048
  2. EXJADE [Suspect]
     Dosage: UNK UKN, UNK
     Route: 048
  3. VITAMIN D [Concomitant]
     Indication: VITAMIN D DEFICIENCY
     Dosage: 50000 IU, WEEKLY
  4. KCL [Concomitant]
     Dosage: 8 MEQ, DAILY
  5. SODIUM ACID PHOSPHATE [Concomitant]
     Dosage: 500 MG, DAILY

REACTIONS (2)
  - Hypokalaemia [Recovering/Resolving]
  - Metabolic acidosis [Recovering/Resolving]
